FAERS Safety Report 23122500 (Version 1)
Quarter: 2023Q4

REPORT INFORMATION
  Report Type: Report from Study
  Country: BR (occurrence: BR)
  Receive Date: 20231030
  Receipt Date: 20231030
  Transmission Date: 20240110
  Serious: Yes (Hospitalization, Other)
  Sender: FDA-Public Use
  Company Number: BR-CELLTRION INC.-2023BR018169

PATIENT

DRUGS (7)
  1. INFLIXIMAB [Suspect]
     Active Substance: INFLIXIMAB
     Indication: Rheumatoid arthritis
     Dosage: 2 AMPOULES EVERY 2 MONTHS
     Route: 042
     Dates: start: 20230103
  2. INFLIXIMAB [Suspect]
     Active Substance: INFLIXIMAB
     Dosage: 2 AMPOULES EVERY 2 MONTHS
     Route: 042
     Dates: start: 20230714
  3. PREDNISONE [Concomitant]
     Active Substance: PREDNISONE
     Indication: Rheumatoid arthritis
     Dosage: 1 PILL A DAY (START DATE: FROM OVER 18 YEARS)
     Route: 048
  4. METHOTREXATE [Concomitant]
     Active Substance: METHOTREXATE
     Indication: Rheumatoid arthritis
     Dosage: 3 PILLS A DAY (START DATE: FROM OVER 18 YEARS)
     Route: 048
  5. PANTOPRAZOLE [Concomitant]
     Active Substance: PANTOPRAZOLE
     Dosage: 1 PILL A DAY (START DATE: FROM 6 MONTHS)
  6. LOSARTAN [Concomitant]
     Active Substance: LOSARTAN
     Indication: Hypertension
     Dosage: 1 PILL A DAY
     Route: 048
  7. FOLIC ACID [Concomitant]
     Active Substance: FOLIC ACID
     Indication: Rheumatoid arthritis
     Dosage: 1 PILL A WEEK (START DATE: FROM OVER 18 YEARS)
     Route: 048

REACTIONS (5)
  - Thrombosis [Unknown]
  - Influenza [Recovering/Resolving]
  - Nasopharyngitis [Recovering/Resolving]
  - Cough [Recovering/Resolving]
  - Intentional dose omission [Unknown]
